FAERS Safety Report 9189933 (Version 1)
Quarter: 2013Q1

REPORT INFORMATION
  Report Type: Spontaneous
  Country: US (occurrence: None)
  Receive Date: 20130322
  Receipt Date: 20130322
  Transmission Date: 20140127
  Serious: No
  Sender: FDA-Public Use
  Company Number: None

PATIENT
  Age: 9 Year
  Sex: Male
  Weight: 41.8 kg

DRUGS (13)
  1. DAPSONE [Suspect]
     Indication: ANTIFUNGAL PROPHYLAXIS
     Route: 048
     Dates: start: 20121106, end: 20121107
  2. ACYCLOVIR [Concomitant]
  3. RESTASIS [Concomitant]
  4. ERGOCALCIFEROL [Concomitant]
  5. MAGNESIUM SULFATE [Concomitant]
  6. MICAFUNGIN [Concomitant]
  7. OMEPRAZOLE [Concomitant]
  8. PREDNISONE [Concomitant]
  9. TACROLIMUS [Concomitant]
  10. TRIAMCINOLONE [Concomitant]
  11. CETAPHIL [Concomitant]
  12. ACETAMINOPHEN [Concomitant]
  13. DIPHEN [Concomitant]

REACTIONS (2)
  - Oxygen saturation decreased [None]
  - Blood methaemoglobin present [None]
